FAERS Safety Report 5010359-2 (Version None)
Quarter: 2006Q2

REPORT INFORMATION
  Report Type: 
  Country: None (occurrence: None)
  Receive Date: 20060523
  Receipt Date: 20060508
  Transmission Date: 20061013
  Serious: Yes (Other)
  Sender: FDA-Public Use
  Company Number: 2006BH009574

PATIENT

DRUGS (1)
  1. HEPARIN SODIUM [Suspect]
     Indication: DIAGNOSTIC PROCEDURE
     Dosage: 1000 UNITS; 4000 UNITS

REACTIONS (2)
  - ARTERIAL OCCLUSIVE DISEASE [None]
  - PROCEDURAL COMPLICATION [None]
